FAERS Safety Report 4611895-0 (Version None)
Quarter: 2005Q2

REPORT INFORMATION
  Report Type: 
  Country: None (occurrence: None)
  Receive Date: 20050308
  Receipt Date: 20041105
  Transmission Date: 20051028
  Serious: Yes (Other)
  Sender: FDA-Public Use
  Company Number: 2004UW22879

PATIENT
  Age: 46 Year
  Sex: Male
  Weight: 165.56 kg

DRUGS (5)
  1. CRESTOR [Suspect]
     Indication: BLOOD CHOLESTEROL INCREASED
     Dosage: 10 MG PO
     Dates: start: 20040101, end: 20041101
  2. SYNTHROID [Concomitant]
  3. TOPROL-XL [Concomitant]
  4. COLECHINE [Concomitant]
  5. NIASPAN [Concomitant]

REACTIONS (2)
  - MYALGIA [None]
  - WEIGHT INCREASED [None]
